FAERS Safety Report 17061422 (Version 1)
Quarter: 2019Q4

REPORT INFORMATION
  Report Type: Spontaneous
  Country: US (occurrence: US)
  Receive Date: 20191121
  Receipt Date: 20191121
  Transmission Date: 20200122
  Serious: Yes (Other)
  Sender: FDA-Public Use
  Company Number: US-NALPROPION PHARMACEUTICALS INC.-2019-009017

PATIENT
  Sex: Female

DRUGS (1)
  1. CONTRAVE [Suspect]
     Active Substance: BUPROPION HYDROCHLORIDE\NALTREXONE HYDROCHLORIDE
     Indication: WEIGHT CONTROL
     Dosage: UNK
     Route: 065
     Dates: start: 2017, end: 2017

REACTIONS (6)
  - Seizure [Unknown]
  - Thermal burn [Unknown]
  - Therapy cessation [Unknown]
  - Accident [Unknown]
  - Feeling abnormal [Not Recovered/Not Resolved]
  - Brain neoplasm benign [Recovered/Resolved]

NARRATIVE: CASE EVENT DATE: 2017
